FAERS Safety Report 7773118-3 (Version None)
Quarter: 2011Q3

REPORT INFORMATION
  Report Type: 
  Country: None (occurrence: None)
  Receive Date: 20110922
  Receipt Date: 20100115
  Transmission Date: 20111222
  Serious: No
  Sender: FDA-Public Use
  Company Number: US-ASTRAZENECA-2009SE16101

PATIENT
  Age: 44 Year
  Sex: Female
  Weight: 126.1 kg

DRUGS (10)
  1. LEXAPRO [Concomitant]
     Route: 048
     Dates: start: 20050926
  2. ABILIFY [Concomitant]
     Dates: start: 20050101
  3. SEROQUEL [Suspect]
     Indication: BIPOLAR DISORDER
     Dosage: 100-150MG
     Route: 048
     Dates: start: 20040101, end: 20060101
  4. PROTONIX [Concomitant]
     Dates: start: 20050926
  5. SEROQUEL [Suspect]
     Indication: DEPRESSION
     Dosage: 100-150MG
     Route: 048
     Dates: start: 20040101, end: 20060101
  6. QUINAPRIL HCL [Concomitant]
     Dates: start: 20050926
  7. SEROQUEL [Suspect]
     Route: 048
     Dates: start: 20050926
  8. SEROQUEL [Suspect]
     Route: 048
     Dates: start: 20050926
  9. WELLBUTRIN XL [Concomitant]
     Route: 048
     Dates: start: 20050926
  10. HYDROCHLOROTHIAZIDE [Concomitant]
     Dates: start: 20050926

REACTIONS (2)
  - OBESITY [None]
  - TYPE 2 DIABETES MELLITUS [None]
